FAERS Safety Report 9400465 (Version 1)
Quarter: 2013Q3

REPORT INFORMATION
  Report Type: Spontaneous
  Country: GB (occurrence: None)
  Receive Date: 20130711
  Receipt Date: 20130711
  Transmission Date: 20140515
  Serious: Yes (Other)
  Sender: FDA-Public Use
  Company Number: CIP-2013-00142

PATIENT
  Age: 65 Year
  Sex: Female

DRUGS (3)
  1. RISPERIDONE [Suspect]
     Indication: DEPRESSION
     Dosage: 2 MILLIGRAM (1 MG,2 IN 1 D),ORAL
     Route: 048
  2. SALBUTAMOL (SALBUTAMOL) (INHALATION POWDER) [Concomitant]
  3. TIOTROPIUM (TIOTROPIUM) (INHALATION POWDER) [Concomitant]

REACTIONS (1)
  - Cystoid macular oedema [None]
